FAERS Safety Report 25269825 (Version 3)
Quarter: 2025Q3

REPORT INFORMATION
  Report Type: Report from Study
  Country: US (occurrence: US)
  Receive Date: 20250505
  Receipt Date: 20250912
  Transmission Date: 20251020
  Serious: Yes (Death, Congenital Anomaly, Other)
  Sender: GILEAD
  Company Number: US-GILEAD-2025-0712323

PATIENT
  Sex: Male
  Weight: 2.95 kg

DRUGS (2)
  1. BICTEGRAVIR\EMTRICITABINE\TENOFOVIR ALAFENAMIDE [Suspect]
     Active Substance: BICTEGRAVIR\EMTRICITABINE\TENOFOVIR ALAFENAMIDE
     Indication: HIV infection
     Dosage: 1 DOSAGE FORM, QD
     Route: 064
  2. FOLATE SODIUM [Concomitant]
     Active Substance: FOLATE SODIUM
     Route: 065

REACTIONS (4)
  - Cardiac disorder [Fatal]
  - Hypoplastic right heart syndrome [Unknown]
  - Congenital pulmonary valve atresia [Unknown]
  - Foetal exposure during pregnancy [Recovered/Resolved]

NARRATIVE: CASE EVENT DATE: 20250708
